FAERS Safety Report 4813403-8 (Version None)
Quarter: 2005Q4

REPORT INFORMATION
  Report Type: 
  Country: None (occurrence: None)
  Receive Date: 20051028
  Receipt Date: 20051020
  Transmission Date: 20060501
  Serious: Yes (Hospitalization, Other)
  Sender: FDA-Public Use
  Company Number: JP-NOVOPROD-247930

PATIENT
  Age: 38 Year
  Sex: Female

DRUGS (4)
  1. PENFILL R CHU [Suspect]
     Indication: INSULIN-REQUIRING TYPE II DIABETES MELLITUS
     Dates: start: 20021018
  2. PENFILL N CHU [Suspect]
     Indication: INSULIN-REQUIRING TYPE II DIABETES MELLITUS
     Dates: start: 20021018
  3. VOGLIBOSE [Concomitant]
     Dates: start: 20030504
  4. GLIMEPIRIDE [Concomitant]
     Dates: start: 20020601

REACTIONS (3)
  - ANTI-INSULIN ANTIBODY INCREASED [None]
  - BLOOD GLUCOSE INCREASED [None]
  - HEPATIC STEATOSIS [None]
